FAERS Safety Report 7798802-7 (Version None)
Quarter: 2011Q4

REPORT INFORMATION
  Report Type: 
  Country: None (occurrence: None)
  Receive Date: 20111005
  Receipt Date: 20111005
  Transmission Date: 20120403
  Serious: Yes (Hospitalization)
  Sender: FDA-Public Use
  Company Number: None

PATIENT
  Age: 72 Year
  Sex: Female
  Weight: 65.7716 kg

DRUGS (1)
  1. CLOZAPINE [Suspect]
     Indication: SCHIZOPHRENIA
     Dosage: 250 MG H.S. H.S. MOUTH
     Route: 048
     Dates: start: 19920301

REACTIONS (3)
  - FOREARM FRACTURE [None]
  - SALIVARY GLAND NEOPLASM [None]
  - FALL [None]
